FAERS Safety Report 5836971-6 (Version None)
Quarter: 2008Q3

REPORT INFORMATION
  Report Type: 
  Country: None (occurrence: None)
  Receive Date: 20080807
  Receipt Date: 20080804
  Transmission Date: 20090109
  Serious: Yes (Hospitalization)
  Sender: FDA-Public Use
  Company Number: TR-JNJFOC-20080800430

PATIENT
  Sex: Male

DRUGS (4)
  1. TOPAMAX [Suspect]
     Indication: RESTLESS LEGS SYNDROME
     Route: 048
  2. TOPAMAX [Suspect]
     Route: 048
  3. SERTRALIN [Concomitant]
     Indication: DEPRESSION
  4. TERAZOSIN HYDROCHLORIDE [Concomitant]
     Indication: BENIGN PROSTATIC HYPERPLASIA

REACTIONS (8)
  - COORDINATION ABNORMAL [None]
  - DYSGEUSIA [None]
  - GAIT DISTURBANCE [None]
  - MUSCLE DISORDER [None]
  - MUSCULAR WEAKNESS [None]
  - NERVOUSNESS [None]
  - OFF LABEL USE [None]
  - WEIGHT DECREASED [None]
